FAERS Safety Report 5664937-8 (Version None)
Quarter: 2008Q1

REPORT INFORMATION
  Report Type: 
  Country: None (occurrence: None)
  Receive Date: 20080314
  Receipt Date: 20080304
  Transmission Date: 20080703
  Serious: Yes (Hospitalization)
  Sender: FDA-Public Use
  Company Number: US-ELI_LILLY_AND_COMPANY-US200803000654

PATIENT
  Sex: Female

DRUGS (2)
  1. CYMBALTA [Suspect]
     Indication: PAIN
     Dosage: 60 MG, DAILY (1/D)
     Dates: start: 20070101, end: 20080201
  2. COUMADIN [Concomitant]
     Dosage: 5 MG, DAILY (1/D)
     Dates: start: 20030101

REACTIONS (2)
  - COAGULOPATHY [None]
  - DRUG INTERACTION [None]
